FAERS Safety Report 8539760-7 (Version None)
Quarter: 2012Q3

REPORT INFORMATION
  Report Type: 
  Country: None (occurrence: None)
  Receive Date: 20120726
  Receipt Date: 20120723
  Transmission Date: 20120928
  Serious: Yes (Other)
  Sender: FDA-Public Use
  Company Number: US-AMGEN-USASP2012037002

PATIENT
  Sex: Male

DRUGS (11)
  1. RENVELA [Concomitant]
     Dosage: UNK
  2. HECTOROL [Concomitant]
     Dosage: UNK
  3. EPOGEN [Suspect]
     Indication: DIALYSIS
     Dosage: 16500 IU, 3 TIMES/WK
     Dates: start: 20110423
  4. CARDIZEM [Concomitant]
  5. SERTRALINE HYDROCHLORIDE [Concomitant]
     Dosage: UNK
  6. COREG [Concomitant]
     Dosage: UNK
  7. CLONIDINE [Concomitant]
     Dosage: UNK
  8. DOCUSATE SODIUM [Concomitant]
     Dosage: UNK
  9. MIRALAX                            /00754501/ [Concomitant]
     Dosage: UNK
  10. VENOFER [Concomitant]
     Dosage: UNK UNK, QWK
  11. MINOXIDIL [Concomitant]
     Dosage: UNK

REACTIONS (1)
  - THERAPEUTIC RESPONSE DECREASED [None]
